FAERS Safety Report 17875684 (Version 1)
Quarter: 2020Q2

REPORT INFORMATION
  Report Type: Spontaneous
  Country: US (occurrence: US)
  Receive Date: 20200608
  Receipt Date: 20200608
  Transmission Date: 20200714
  Serious: Yes (Other)
  Sender: FDA-Public Use
  Company Number: None

PATIENT
  Age: 61 Year
  Sex: Male
  Weight: 68.4 kg

DRUGS (1)
  1. ELBASVIR/GRAZOPREVIR (ELBASVIR 50MG/GRAZOPREVIR 100MG TAB) ? [Suspect]
     Active Substance: ELBASVIR\GRAZOPREVIR
     Indication: HEPATITIS C
     Dosage: ?          OTHER DOSE:50/100MG;?
     Route: 048
     Dates: start: 20170929, end: 20171027

REACTIONS (8)
  - Skin discolouration [None]
  - Pruritus [None]
  - Skin lesion [None]
  - Eye irritation [None]
  - Rash [None]
  - Swelling [None]
  - Urticaria [None]
  - Nausea [None]

NARRATIVE: CASE EVENT DATE: 20171012
